FAERS Safety Report 18189756 (Version 2)
Quarter: 2020Q3

REPORT INFORMATION
  Report Type: Spontaneous
  Country: US (occurrence: US)
  Receive Date: 20200824
  Receipt Date: 20200921
  Transmission Date: 20201103
  Serious: Yes (Other)
  Sender: FDA-Public Use
  Company Number: US-BRISTOL-MYERS SQUIBB COMPANY-BMS-2020-068183

PATIENT
  Sex: Male

DRUGS (3)
  1. ELIQUIS [Suspect]
     Active Substance: APIXABAN
     Indication: CEREBROVASCULAR ACCIDENT PROPHYLAXIS
     Route: 065
  2. LENALIDOMIDE [Suspect]
     Active Substance: LENALIDOMIDE
     Indication: PLASMA CELL MYELOMA
  3. LENALIDOMIDE [Suspect]
     Active Substance: LENALIDOMIDE
     Indication: ABDOMINAL PAIN
     Dosage: 15 MG EVERY 14 IN 21 DAYS
     Route: 048
     Dates: start: 201805

REACTIONS (4)
  - Increased tendency to bruise [Unknown]
  - Eye disorder [Unknown]
  - Cerebrovascular accident [Unknown]
  - Iodine allergy [Unknown]

NARRATIVE: CASE EVENT DATE: 2019
